FAERS Safety Report 24128009 (Version 1)
Quarter: 2024Q3

REPORT INFORMATION
  Report Type: Report from Study
  Country: US (occurrence: US)
  Receive Date: 20240723
  Receipt Date: 20240723
  Transmission Date: 20241017
  Serious: No
  Sender: VANDA PHARMACEUTICALS
  Company Number: US-VANDA PHARMACEUTICALS, INC-2023TASUS006878

PATIENT
  Sex: Male

DRUGS (1)
  1. HETLIOZ [Suspect]
     Active Substance: TASIMELTEON
     Indication: Non-24-hour sleep-wake disorder
     Dosage: 20 MILLIGRAM, QHS, TAKE 1 CAPSULE BY MOUTH EVERY 24 HOURS, 1 HOUR BEFORE BEDTIME AT THE SAME TIME EV
     Route: 048
     Dates: start: 20220226

REACTIONS (1)
  - Product dose omission issue [Unknown]
